FAERS Safety Report 13255324 (Version 1)
Quarter: 2017Q1

REPORT INFORMATION
  Report Type: Spontaneous
  Country: US (occurrence: US)
  Receive Date: 20170217
  Receipt Date: 20170217
  Transmission Date: 20170428
  Serious: No
  Sender: FDA-Public Use
  Company Number: None

PATIENT
  Age: 53 Year
  Sex: Female

DRUGS (1)
  1. EPCLUSA [Suspect]
     Active Substance: SOFOSBUVIR\VELPATASVIR
     Indication: HEPATITIS C
     Dosage: 400MG/100MG DAILY ORALLY
     Route: 048
     Dates: start: 20170119

REACTIONS (2)
  - Chest pain [None]
  - Hepatic pain [None]

NARRATIVE: CASE EVENT DATE: 20170208
